FAERS Safety Report 8467492-2 (Version None)
Quarter: 2012Q2

REPORT INFORMATION
  Report Type: 
  Country: None (occurrence: None)
  Receive Date: 20120323
  Receipt Date: 20110817
  Transmission Date: 20120825
  Serious: Yes (Other)
  Sender: FDA-Public Use
  Company Number: 163-21880-11082073

PATIENT
  Age: 68 Year
  Sex: Male
  Weight: 99.7913 kg

DRUGS (11)
  1. ESOMEPRAZOLE MAGNESIUM [Concomitant]
  2. BLOOD PRESSURE MEDICATION (ANTIHYPERTENSIVES) [Concomitant]
  3. ACYCLOVIR [Concomitant]
  4. LENALIDOMIDE [Suspect]
     Indication: CHRONIC LYMPHOCYTIC LEUKAEMIA
     Dosage: 5 MG, QOD, PO
     Route: 048
     Dates: start: 20110601
  5. LASIX [Concomitant]
  6. DIABETES MEDICATION (ANTI-DIABETICS) [Concomitant]
  7. IG (IMMUNOGLOBULIN) [Concomitant]
  8. IMODIUM [Concomitant]
  9. METFFORMIN HYDROCHLORIDE [Concomitant]
  10. ANTIBIOTICS (ANTIBIOTICS) [Concomitant]
  11. LEVOFLOXACIN [Concomitant]

REACTIONS (2)
  - RECTAL HAEMORRHAGE [None]
  - DIARRHOEA [None]
